FAERS Safety Report 4300623-4 (Version None)
Quarter: 2004Q1

REPORT INFORMATION
  Report Type: 
  Country: None (occurrence: None)
  Receive Date: 20040218
  Receipt Date: 20040209
  Transmission Date: 20041129
  Serious: Yes (Death)
  Sender: FDA-Public Use
  Company Number: 163-20785-04020280

PATIENT
  Age: 61 Year
  Sex: Male

DRUGS (1)
  1. THALOMID [Suspect]
     Indication: DRUG USE FOR UNKNOWN INDICATION
     Dosage: ORAL  2-3 WEEKS
     Route: 048

REACTIONS (5)
  - AGEUSIA [None]
  - ANOREXIA [None]
  - ASTHENIA [None]
  - SOMNOLENCE [None]
  - WEIGHT DECREASED [None]
